FAERS Safety Report 5122809-1 (Version None)
Quarter: 2006Q4

REPORT INFORMATION
  Report Type: 
  Country: None (occurrence: None)
  Receive Date: 20061009
  Receipt Date: 20060420
  Transmission Date: 20070319
  Serious: Yes (Life-Threatening, Hospitalization)
  Sender: FDA-Public Use
  Company Number: US-BRISTOL-MYERS SQUIBB COMPANY-13352034

PATIENT
  Age: 49 Year
  Sex: Male

DRUGS (7)
  1. CISPLATIN [Suspect]
     Indication: GASTROOESOPHAGEAL CANCER
     Route: 041
     Dates: start: 20060407, end: 20060407
  2. FLUOROURACIL [Suspect]
     Indication: GASTROOESOPHAGEAL CANCER
     Route: 041
     Dates: start: 20060411, end: 20060411
  3. HYDROCODONE BITARTRATE [Concomitant]
     Indication: PAIN
     Route: 048
     Dates: start: 20060301
  4. ZOFRAN [Concomitant]
     Indication: NAUSEA
     Route: 048
     Dates: start: 20060401
  5. ZOFRAN [Concomitant]
     Indication: VOMITING
     Route: 048
     Dates: start: 20060401
  6. PROCHLORPERAZINE [Concomitant]
     Indication: NAUSEA
     Route: 048
     Dates: start: 20060401
  7. PROCHLORPERAZINE [Concomitant]
     Indication: VOMITING
     Route: 048
     Dates: start: 20060401

REACTIONS (4)
  - HYPONATRAEMIA [None]
  - METABOLIC ACIDOSIS [None]
  - RENAL FAILURE [None]
  - VENTRICULAR FIBRILLATION [None]
